FAERS Safety Report 9744262 (Version 2)
Quarter: 2014Q1

REPORT INFORMATION
  Report Type: Spontaneous
  Country: US (occurrence: US)
  Receive Date: 20131210
  Receipt Date: 20140207
  Transmission Date: 20141002
  Serious: No
  Sender: FDA-Public Use
  Company Number: US-BIOGENIDEC-2013BI102132

PATIENT
  Age: 51 Year
  Sex: Male

DRUGS (4)
  1. TECFIDERA [Suspect]
     Indication: MULTIPLE SCLEROSIS
     Route: 048
  2. TECFIDERA [Suspect]
     Indication: MULTIPLE SCLEROSIS
     Route: 048
  3. TECFIDERA [Suspect]
     Indication: MULTIPLE SCLEROSIS
     Dates: start: 20130627
  4. TYSABRI [Concomitant]
     Route: 042
     Dates: start: 20061102, end: 20130604

REACTIONS (3)
  - Toothache [Recovered/Resolved]
  - Trigeminal neuralgia [Not Recovered/Not Resolved]
  - Diarrhoea [Recovered/Resolved]
